FAERS Safety Report 23757608 (Version 1)
Quarter: 2024Q2

REPORT INFORMATION
  Report Type: Spontaneous
  Country: US (occurrence: None)
  Receive Date: 20240418
  Receipt Date: 20240418
  Transmission Date: 20240715
  Serious: Yes (Other)
  Sender: FDA-Public Use
  Company Number: None

PATIENT
  Age: 73 Year
  Sex: Female
  Weight: 65.77 kg

DRUGS (2)
  1. ATORVASTATIN CALCIUM [Suspect]
     Active Substance: ATORVASTATIN CALCIUM
     Indication: Blood cholesterol increased
     Dosage: 1 PILL DAILY EVENING MOUTH  ?
     Route: 048
     Dates: start: 20231003, end: 20231022
  2. EZETIMIBE [Concomitant]
     Active Substance: EZETIMIBE

REACTIONS (11)
  - Insomnia [None]
  - Middle insomnia [None]
  - Abnormal dreams [None]
  - Blood urine present [None]
  - Myalgia [None]
  - Back pain [None]
  - Myalgia [None]
  - Night sweats [None]
  - Fatigue [None]
  - Nasopharyngitis [None]
  - Therapy cessation [None]

NARRATIVE: CASE EVENT DATE: 20231003
